FAERS Safety Report 10067862 (Version 2)
Quarter: 2014Q2

REPORT INFORMATION
  Report Type: Spontaneous
  Country: CA (occurrence: CA)
  Receive Date: 20140409
  Receipt Date: 20140409
  Transmission Date: 20141212
  Serious: Yes (Other)
  Sender: FDA-Public Use
  Company Number: PHHY2013CA129415

PATIENT
  Age: 32 Year
  Sex: Male
  Weight: 64 kg

DRUGS (17)
  1. ENABLEX [Suspect]
     Indication: PROSTATITIS
     Dosage: 7.5 MG, QD
     Route: 048
     Dates: start: 20121101, end: 20130201
  2. EMTRICITABINE W/TENOFOVIR DISOPROXIL FUMARATE [Suspect]
     Indication: HIV INFECTION
     Dosage: 1 DF, DAILY
     Route: 048
     Dates: start: 20120315, end: 20130508
  3. MARAVIROC [Suspect]
     Indication: HIV INFECTION
     Dosage: 1 DF, BID
     Route: 048
     Dates: start: 20120315, end: 20130508
  4. RALTEGRAVIR [Suspect]
     Indication: HIV INFECTION
     Dosage: 1 DF, BID
     Route: 048
     Dates: start: 20120315, end: 20130508
  5. LOPINAVIR + RITONAVIR [Suspect]
     Indication: HIV INFECTION
     Dosage: 1 DF, UNK
     Route: 048
     Dates: start: 20120315
  6. ELMIRON [Suspect]
     Indication: CYSTITIS
     Dosage: 100 MG, BID
     Route: 048
     Dates: start: 20120711, end: 20130228
  7. ELMIRON [Suspect]
     Dosage: 100 MG, BID
     Route: 048
     Dates: start: 20130424, end: 20130527
  8. DETROL LA [Suspect]
     Indication: PROSTATITIS
     Dosage: 4 MG, DAILY
     Route: 048
     Dates: start: 20120516, end: 20120605
  9. DETROL LA [Suspect]
     Dosage: 4 MG, QD
     Route: 048
     Dates: start: 20121101, end: 20130325
  10. TOVIAZ [Suspect]
     Indication: CYSTITIS ULCERATIVE
     Dosage: UNK UKN, DAILY
     Route: 048
     Dates: start: 20121101, end: 20130115
  11. CYMBALTA [Suspect]
     Indication: CYSTITIS ULCERATIVE
     Dosage: 600 MG, DAILY
     Route: 048
     Dates: start: 20121101, end: 20130325
  12. TRUVADA [Suspect]
     Indication: HIV INFECTION
     Dosage: 1 DF, QD
     Route: 048
     Dates: start: 20120315, end: 20130508
  13. FLOXIN ^HILTON^ [Concomitant]
  14. GABAPENTIN [Concomitant]
     Dosage: UNK UKN, UNK
     Dates: start: 20120830, end: 20121210
  15. OXYCOCET [Concomitant]
     Dates: start: 20120327
  16. ATIVAN [Concomitant]
     Dosage: UNK UKN, UNK
     Dates: start: 20120202, end: 20130308
  17. WELLBUTRIN [Concomitant]
     Dosage: UNK UKN, UNK
     Dates: start: 20120225, end: 20130313

REACTIONS (1)
  - Neutropenia [Not Recovered/Not Resolved]
